FAERS Safety Report 12937984 (Version 1)
Quarter: 2016Q4

REPORT INFORMATION
  Report Type: Report from Study
  Country: PK (occurrence: PK)
  Receive Date: 20161114
  Receipt Date: 20161114
  Transmission Date: 20170207
  Serious: Yes (Other)
  Sender: FDA-Public Use
  Company Number: PHHY2016PK152519

PATIENT
  Age: 51 Year
  Sex: Female
  Weight: 57 kg

DRUGS (1)
  1. GLIVEC [Suspect]
     Active Substance: IMATINIB MESYLATE
     Indication: CHRONIC MYELOID LEUKAEMIA
     Dosage: 400 MG, QD (4OD)
     Route: 048
     Dates: start: 20160816, end: 20161105

REACTIONS (4)
  - Platelet count increased [Unknown]
  - Haemoglobin decreased [Unknown]
  - Drug intolerance [Not Recovered/Not Resolved]
  - White blood cell count increased [Unknown]

NARRATIVE: CASE EVENT DATE: 20161018
